FAERS Safety Report 9436009 (Version 4)
Quarter: 2014Q1

REPORT INFORMATION
  Report Type: Spontaneous
  Country: US (occurrence: US)
  Receive Date: 20130801
  Receipt Date: 20140110
  Transmission Date: 20141002
  Serious: No
  Sender: FDA-Public Use
  Company Number: US-009507513-1307USA014032

PATIENT
  Sex: Male

DRUGS (3)
  1. PEGINTRON [Suspect]
     Indication: HEPATITIS C
     Dosage: 0.5 ML, QW
     Route: 058
     Dates: start: 20130719, end: 20131227
  2. REBETOL [Suspect]
     Indication: HEPATITIS C
     Dosage: 2 TABS IN AM / 2 TABS IN PM
     Route: 048
     Dates: start: 20130719, end: 20140103
  3. LORTAB [Concomitant]

REACTIONS (14)
  - Abnormal behaviour [Unknown]
  - Dysphagia [Unknown]
  - Libido decreased [Unknown]
  - Dry mouth [Unknown]
  - Pruritus [Unknown]
  - Irritability [Unknown]
  - Malaise [Unknown]
  - Decreased appetite [Unknown]
  - Weight decreased [Unknown]
  - Pyrexia [Unknown]
  - Pyrexia [Unknown]
  - Injection site reaction [Unknown]
  - Injection site reaction [Unknown]
  - Pyrexia [Unknown]
